FAERS Safety Report 16763115 (Version 1)
Quarter: 2019Q3

REPORT INFORMATION
  Report Type: Spontaneous
  Country: US (occurrence: US)
  Receive Date: 20190902
  Receipt Date: 20190902
  Transmission Date: 20191005
  Serious: No
  Sender: FDA-Public Use
  Company Number: US-AMGEN-USASP2019137692

PATIENT
  Sex: Female

DRUGS (1)
  1. PROLIA [Suspect]
     Active Substance: DENOSUMAB
     Indication: PARKINSON^S DISEASE
     Dosage: 60 MILLIGRAM, Q6MO
     Route: 065
     Dates: start: 2015

REACTIONS (2)
  - Aphonia [Unknown]
  - Off label use [Unknown]
